FAERS Safety Report 7732282-2 (Version None)
Quarter: 2011Q3

REPORT INFORMATION
  Report Type: 
  Country: None (occurrence: None)
  Receive Date: 20110906
  Receipt Date: 20110824
  Transmission Date: 20111222
  Serious: No
  Sender: FDA-Public Use
  Company Number: US-AMGEN-USASP2011043467

PATIENT
  Age: 87 Year
  Sex: Female

DRUGS (9)
  1. PROLIA [Suspect]
     Indication: OSTEOPOROSIS POSTMENOPAUSAL
     Dosage: 60 MG, Q6MO
     Dates: start: 20110301
  2. MOBIC [Concomitant]
     Indication: PAIN
     Dosage: UNK
  3. CENTRUM SILVER                     /01292501/ [Concomitant]
     Dosage: UNK
  4. CITRACAL PETITES [Concomitant]
  5. DIOVAN [Concomitant]
     Dosage: UNK
  6. ASPIRIN [Concomitant]
     Dosage: UNK
  7. BENEFIBER                          /00677201/ [Concomitant]
     Indication: CONSTIPATION
     Dosage: UNK
  8. ZOCOR [Concomitant]
     Dosage: UNK
  9. PRILOSEC [Concomitant]
     Dosage: UNK

REACTIONS (9)
  - URINARY INCONTINENCE [None]
  - ERYTHEMA [None]
  - ARTHROPATHY [None]
  - POOR PERIPHERAL CIRCULATION [None]
  - OEDEMA PERIPHERAL [None]
  - RASH [None]
  - BURNING SENSATION [None]
  - CONSTIPATION [None]
  - PRURITUS [None]
